FAERS Safety Report 6942542-0 (Version None)
Quarter: 2010Q3

REPORT INFORMATION
  Report Type: 
  Country: None (occurrence: None)
  Receive Date: 20100823
  Receipt Date: 20100813
  Transmission Date: 20110219
  Serious: Yes (Hospitalization)
  Sender: FDA-Public Use
  Company Number: 2010SP043979

PATIENT
  Age: 45 Year
  Sex: Female

DRUGS (1)
  1. MOXAFIL (POSACONAZOLE /01762801/) [Suspect]
     Indication: ASPERGILLOMA
     Dosage: PO
     Route: 048
     Dates: start: 20100606, end: 20100629

REACTIONS (2)
  - KERATITIS [None]
  - WEGENER'S GRANULOMATOSIS [None]
